FAERS Safety Report 8465592-4 (Version None)
Quarter: 2012Q2

REPORT INFORMATION
  Report Type: 
  Country: None (occurrence: None)
  Receive Date: 20120626
  Receipt Date: 20120618
  Transmission Date: 20120825
  Serious: Yes (Hospitalization)
  Sender: FDA-Public Use
  Company Number: US-BAYER-2012-061789

PATIENT
  Age: 18 Year
  Sex: Female
  Weight: 86.168 kg

DRUGS (3)
  1. YASMIN [Suspect]
  2. METRONIDAZOLE [Concomitant]
     Dosage: 0.75 %, UNK
     Route: 067
     Dates: start: 20110405, end: 20110604
  3. HYDROCODONE BITARTRATE + ACETAMINOPHEN [Concomitant]
     Dosage: 5 AND 500 MG
     Route: 048
     Dates: start: 20070620, end: 20120124

REACTIONS (1)
  - PULMONARY EMBOLISM [None]
